FAERS Safety Report 8343896-3 (Version None)
Quarter: 2012Q2

REPORT INFORMATION
  Report Type: 
  Country: None (occurrence: None)
  Receive Date: 20120508
  Receipt Date: 20100930
  Transmission Date: 20120825
  Serious: No
  Sender: FDA-Public Use
  Company Number: US-TEVA-2010005210

PATIENT
  Sex: Female
  Weight: 49.032 kg

DRUGS (5)
  1. TOPAMAX [Concomitant]
  2. VITAMIN D [Concomitant]
     Dates: start: 20090101
  3. KAPIDEX [Concomitant]
     Dates: start: 20100301
  4. TREANDA [Suspect]
     Indication: NON-HODGKIN'S LYMPHOMA
     Route: 042
     Dates: start: 20100101, end: 20100824
  5. CYMBALTA [Concomitant]
     Dates: start: 20080101

REACTIONS (3)
  - BLOOD COUNT ABNORMAL [None]
  - MUSCLE SPASMS [None]
  - PAIN IN EXTREMITY [None]
